FAERS Safety Report 8236707-8 (Version None)
Quarter: 2012Q1

REPORT INFORMATION
  Report Type: 
  Country: None (occurrence: None)
  Receive Date: 20120323
  Receipt Date: 20120307
  Transmission Date: 20120608
  Serious: Yes (Hospitalization, Other)
  Sender: FDA-Public Use
  Company Number: DE-2012-1356

PATIENT
  Age: 32 Year
  Sex: Female

DRUGS (3)
  1. VINORELBINE [Suspect]
     Indication: BREAST CANCER
     Dosage: 30 MG/M2 IV
     Route: 042
  2. TRASTUZUMAB (TRASTUZUMAB, TRASTUZUMAB) [Suspect]
     Indication: BREAST CANCER
     Dosage: 6 MG/KG  IV
     Route: 042
  3. IBANDRONATE SODIUM [Suspect]
     Indication: BREAST CANCER
     Dosage: 6 MG

REACTIONS (3)
  - OLIGOHYDRAMNIOS [None]
  - MATERNAL EXPOSURE DURING PREGNANCY [None]
  - CAESAREAN SECTION [None]
